FAERS Safety Report 19640559 (Version 1)
Quarter: 2021Q3

REPORT INFORMATION
  Report Type: Spontaneous
  Country: RS (occurrence: RS)
  Receive Date: 20210730
  Receipt Date: 20210730
  Transmission Date: 20211014
  Serious: Yes (Other)
  Sender: FDA-Public Use
  Company Number: RS-BAYER-2021-182674

PATIENT
  Age: 55 Year
  Sex: Female

DRUGS (2)
  1. ULTRAVIST [Suspect]
     Active Substance: IOPROMIDE
     Indication: COMPUTERISED TOMOGRAM NECK
     Dosage: UNK, ONCE
     Dates: start: 20210722
  2. ULTRAVIST [Suspect]
     Active Substance: IOPROMIDE
     Indication: ABDOMEN SCAN

REACTIONS (7)
  - Asphyxia [None]
  - Nausea [None]
  - Vomiting [None]
  - Urticaria [None]
  - Headache [None]
  - Vertigo [None]
  - Cough [None]

NARRATIVE: CASE EVENT DATE: 20210722
